FAERS Safety Report 12068056 (Version 1)
Quarter: 2016Q1

REPORT INFORMATION
  Report Type: Spontaneous
  Country: US (occurrence: US)
  Receive Date: 20160211
  Receipt Date: 20160211
  Transmission Date: 20160526
  Serious: No
  Sender: FDA-Public Use
  Company Number: US-SMITH AND NEPHEW, INC-2015SMT00271

PATIENT
  Age: 86 Year
  Sex: Female
  Weight: 96.15 kg

DRUGS (12)
  1. ZOCOR [Concomitant]
     Active Substance: SIMVASTATIN
     Dosage: 20 MG, 1X/DAY
  2. ISOSORBIDE. [Concomitant]
     Active Substance: ISOSORBIDE
     Dosage: 30 MG, 1X/DAY
  3. WARFARIN [Concomitant]
     Active Substance: WARFARIN
     Dosage: 1.5 MG, 1X/DAY
  4. PLAVIX [Concomitant]
     Active Substance: CLOPIDOGREL BISULFATE
     Dosage: 75 MG, 1X/DAY
  5. REGRANEX [Suspect]
     Active Substance: BECAPLERMIN
     Indication: WOUND
     Dosage: UNK UNK, 3X/WEEK
     Route: 061
     Dates: start: 201507, end: 201507
  6. ATENOLOL. [Concomitant]
     Active Substance: ATENOLOL
     Dosage: 75 MG, 2X/DAY
  7. VITAMIN D3 [Concomitant]
     Active Substance: CHOLECALCIFEROL
     Dosage: UNK, 1X/DAY
  8. PEPCID [Concomitant]
     Active Substance: FAMOTIDINE
     Dosage: 20 MG, 2X/DAY
  9. LASIX [Concomitant]
     Active Substance: FUROSEMIDE
     Dosage: 60 MG, 1X/DAY
  10. RANEXA [Concomitant]
     Active Substance: RANOLAZINE
     Dosage: UNK, 2X/DAY
  11. SPIRONOLACTONE. [Concomitant]
     Active Substance: SPIRONOLACTONE
     Dosage: 25 MG, 2X/DAY
  12. LOSARTAN. [Concomitant]
     Active Substance: LOSARTAN
     Dosage: 25 MG, 1X/DAY

REACTIONS (3)
  - Application site infection [Recovering/Resolving]
  - Off label use [Recovered/Resolved]
  - Inappropriate schedule of drug administration [Recovered/Resolved]

NARRATIVE: CASE EVENT DATE: 201507
